FAERS Safety Report 25794807 (Version 4)
Quarter: 2025Q4

REPORT INFORMATION
  Report Type: Report from Study
  Country: US (occurrence: US)
  Receive Date: 20250912
  Receipt Date: 20251007
  Transmission Date: 20260118
  Serious: Yes (Death)
  Sender: ROCHE
  Company Number: US-ROCHE-10000381457

PATIENT
  Age: 68 Year
  Sex: Female

DRUGS (20)
  1. OCRELIZUMAB [Suspect]
     Active Substance: OCRELIZUMAB
     Indication: Multiple sclerosis
     Dosage: SUBSEQUENT DOSE: 01-AUG-2022,?LAST INFUSION: 06-FEB-2023
     Route: 042
     Dates: start: 20220126
  2. OCRELIZUMAB [Suspect]
     Active Substance: OCRELIZUMAB
     Dosage: THE FIRST TWO DOSES ARE ADMINISTERED WITHIN?TWO WEEKS.?FREQUENCY: OTHER
     Route: 042
     Dates: start: 20210726
  3. OCRELIZUMAB [Suspect]
     Active Substance: OCRELIZUMAB
     Dosage: THE FIRST TWO DOSES ARE ADMINISTERED WITHIN?TWO WEEKS.?FREQUENCY: OTHER
     Route: 042
     Dates: start: 20210712
  4. OCRELIZUMAB [Suspect]
     Active Substance: OCRELIZUMAB
     Dosage: SUBSEQUENT DOSE: 01-AUG-2022,?LAST INFUSION: 06-FEB-2023
     Route: 042
     Dates: start: 20220801
  5. OCRELIZUMAB [Suspect]
     Active Substance: OCRELIZUMAB
     Dosage: SUBSEQUENT DOSE: 01-AUG-2022,?LAST INFUSION: 06-FEB-2023
     Route: 042
     Dates: start: 20230206, end: 20230206
  6. CALCIUM [Concomitant]
     Active Substance: CALCIUM
     Dosage: 400 INTL
     Route: 048
     Dates: start: 20190913
  7. GABAPENTIN [Concomitant]
     Active Substance: GABAPENTIN
     Dates: start: 20210331, end: 20220406
  8. OMEPRAZOLE [Concomitant]
     Active Substance: OMEPRAZOLE
     Route: 048
     Dates: start: 20110519
  9. OMEPRAZOLE [Concomitant]
     Active Substance: OMEPRAZOLE
     Route: 048
     Dates: start: 20110519
  10. VITAMIN D3 [Concomitant]
     Active Substance: CHOLECALCIFEROL
     Route: 048
     Dates: start: 20210331
  11. VITAMIN D3 [Concomitant]
     Active Substance: CHOLECALCIFEROL
     Route: 048
  12. VITAMIN C [Concomitant]
     Active Substance: ASCORBIC ACID
     Route: 048
     Dates: start: 20210831
  13. LIFITEGRAST [Concomitant]
     Active Substance: LIFITEGRAST
     Dates: start: 20210331
  14. ATORVASTATIN [Concomitant]
     Active Substance: ATORVASTATIN
     Route: 048
     Dates: start: 20210331
  15. CLOBETASOL [Concomitant]
     Active Substance: CLOBETASOL
     Dates: start: 20230331, end: 20231019
  16. XIIDRA [Concomitant]
     Active Substance: LIFITEGRAST
     Dosage: DOSE: 1 DROP
     Dates: start: 20210331
  17. TRAMADOL HYDROCHLORIDE [Concomitant]
     Active Substance: TRAMADOL HYDROCHLORIDE
     Dates: start: 20240930
  18. ACETAMINOPHEN [Concomitant]
     Active Substance: ACETAMINOPHEN
     Dates: end: 20250411
  19. SODIUM CHLORIDE [Concomitant]
     Active Substance: SODIUM CHLORIDE
     Dates: end: 20250411
  20. SODIUM CHLORIDE [Concomitant]
     Active Substance: SODIUM CHLORIDE

REACTIONS (3)
  - Pancreatic carcinoma [Fatal]
  - Metastases to liver [Fatal]
  - Metastases to biliary tract [Fatal]

NARRATIVE: CASE EVENT DATE: 20250411
